FAERS Safety Report 20169720 (Version 3)
Quarter: 2022Q4

REPORT INFORMATION
  Report Type: Spontaneous
  Country: DE (occurrence: None)
  Receive Date: 20211210
  Receipt Date: 20221220
  Transmission Date: 20230113
  Serious: Yes (Hospitalization, Other)
  Sender: FDA-Public Use
  Company Number: DE-ROCHE-2977246

PATIENT
  Age: 80 Year
  Sex: Male

DRUGS (2)
  1. RIVOTRIL [Suspect]
     Active Substance: CLONAZEPAM
     Indication: Pain
     Dosage: 1/2 TABLET OF 0.5 MG IN EVENING, 3 YEARS.
     Route: 048
  2. CANNABIS SATIVA FLOWERING TOP [Suspect]
     Active Substance: CANNABIS SATIVA FLOWERING TOP
     Indication: Pain
     Route: 065

REACTIONS (10)
  - Drug dependence [Unknown]
  - Off label use [Unknown]
  - Personality change [Unknown]
  - Drug abuse [Unknown]
  - Aggression [Unknown]
  - Suicidal ideation [Unknown]
  - Rash [Unknown]
  - Pharmaceutical nomadism [Unknown]
  - Bronchitis [Not Recovered/Not Resolved]
  - Depression [Unknown]
